FAERS Safety Report 7654092-7 (Version None)
Quarter: 2011Q3

REPORT INFORMATION
  Report Type: 
  Country: None (occurrence: None)
  Receive Date: 20110803
  Receipt Date: 20110726
  Transmission Date: 20111222
  Serious: Yes (Hospitalization)
  Sender: FDA-Public Use
  Company Number: PHHY2011DE68120

PATIENT
  Sex: Female

DRUGS (3)
  1. GABAPENTIN [Interacting]
     Indication: NEURALGIA
  2. OXCARBAZEPINE [Interacting]
     Indication: NEURALGIA
  3. GILENYA [Suspect]
     Indication: MULTIPLE SCLEROSIS
     Dosage: 0.5 MG, DAILY
     Route: 048
     Dates: start: 20110722

REACTIONS (5)
  - DIZZINESS [None]
  - NAUSEA [None]
  - DRUG INTERACTION [None]
  - ATRIOVENTRICULAR BLOCK SECOND DEGREE [None]
  - HEART RATE IRREGULAR [None]
